FAERS Safety Report 10607643 (Version 1)
Quarter: 2014Q4

REPORT INFORMATION
  Report Type: Spontaneous
  Country: CA (occurrence: CA)
  Receive Date: 20141125
  Receipt Date: 20141125
  Transmission Date: 20150529
  Serious: Yes (Other)
  Sender: FDA-Public Use
  Company Number: CA-WATSON-2014-25139

PATIENT
  Age: 60 Year
  Sex: Female
  Weight: 125 kg

DRUGS (4)
  1. OMEGA 3                            /06852001/ [Concomitant]
     Active Substance: OMEGA-3 FATTY ACIDS
     Indication: PRODUCT USED FOR UNKNOWN INDICATION
  2. LEVETIRACETAM (UNKNOWN) [Suspect]
     Active Substance: LEVETIRACETAM
     Indication: PRODUCT USED FOR UNKNOWN INDICATION
     Dosage: 1000 MG, 2 EVERY 1 DAY(S)
     Route: 048
  3. QUERCETIN [Concomitant]
     Active Substance: QUERCETIN
     Indication: PRODUCT USED FOR UNKNOWN INDICATION
  4. GENESTRA BRANDS TM HMF FORTE [Concomitant]
     Indication: PRODUCT USED FOR UNKNOWN INDICATION

REACTIONS (5)
  - Mood swings [Recovering/Resolving]
  - Suicidal ideation [Recovering/Resolving]
  - Anger [Recovering/Resolving]
  - Depressed mood [Recovering/Resolving]
  - Tearfulness [Recovering/Resolving]
